FAERS Safety Report 6702021-2 (Version None)
Quarter: 2010Q2

REPORT INFORMATION
  Report Type: 
  Country: None (occurrence: None)
  Receive Date: 20100429
  Receipt Date: 20100420
  Transmission Date: 20101027
  Serious: Yes (Hospitalization, Other)
  Sender: FDA-Public Use
  Company Number: FR-PFIZER INC-2010051103

PATIENT
  Age: 26 Year
  Sex: Male

DRUGS (3)
  1. CEFPODOXIME PROXETIL [Suspect]
     Indication: TONSILLITIS
     Dosage: 100 MG, UNKNOWN
     Route: 048
     Dates: start: 20100215, end: 20100219
  2. IBUPROFEN [Suspect]
     Indication: PHARYNGITIS
     Dosage: UNKNOWN
     Route: 048
     Dates: start: 20100215, end: 20100220
  3. DOLIPRANE [Concomitant]

REACTIONS (7)
  - HEADACHE [None]
  - MENINGITIS [None]
  - MUSCULOSKELETAL STIFFNESS [None]
  - OROPHARYNGEAL PAIN [None]
  - PYREXIA [None]
  - ROAD TRAFFIC ACCIDENT [None]
  - VOMITING [None]
